FAERS Safety Report 25688585 (Version 2)
Quarter: 2025Q4

REPORT INFORMATION
  Report Type: Spontaneous
  Country: US (occurrence: US)
  Receive Date: 20250818
  Receipt Date: 20251215
  Transmission Date: 20260119
  Serious: No
  Sender: KYOWA
  Company Number: US-KYOWAKIRIN-2025KK015878

PATIENT

DRUGS (3)
  1. CRYSVITA [Suspect]
     Active Substance: BUROSUMAB-TWZA
     Indication: Hypophosphataemic osteomalacia
     Dosage: UNK, 1X/4 WEEKS
     Route: 058
  2. SODIUM PHOSPHATE [Suspect]
     Active Substance: SODIUM PHOSPHATE
     Indication: Supplementation therapy
     Dosage: UNK
     Route: 065
  3. CRYSVITA [Concomitant]
     Active Substance: BUROSUMAB-TWZA
     Indication: Hypophosphataemic osteomalacia
     Dosage: UNK, 1X/4 WEEKS
     Route: 058

REACTIONS (1)
  - Contraindicated product administered [Unknown]
